FAERS Safety Report 4807078-1 (Version None)
Quarter: 2005Q4

REPORT INFORMATION
  Report Type: 
  Country: None (occurrence: None)
  Receive Date: 20051020
  Receipt Date: 20051020
  Transmission Date: 20060501
  Serious: Yes (Hospitalization)
  Sender: FDA-Public Use
  Company Number: None

PATIENT
  Age: 30 Year
  Sex: Male
  Weight: 96.2 kg

DRUGS (9)
  1. TRAMADOL [Suspect]
  2. DIVALPROEX SODIUM [Concomitant]
  3. OMEPRAZOLE [Concomitant]
  4. QUETIAPINE FUMARATE [Concomitant]
  5. PROPRANOLOL HYDROCHLORIDE [Concomitant]
  6. ACETAMINOPHEN [Concomitant]
  7. SULFAMETHOXAZOLE AND TRIMETHOPRIM DOUBLE STRENGTH [Concomitant]
  8. KETOROLAC TROMETHAMINE [Concomitant]
  9. AMOXICILLIN [Concomitant]

REACTIONS (1)
  - CONVULSION [None]
